FAERS Safety Report 17450860 (Version 1)
Quarter: 2020Q1

REPORT INFORMATION
  Report Type: Spontaneous
  Country: US (occurrence: US)
  Receive Date: 20200210
  Receipt Date: 20200210
  Transmission Date: 20200409
  Serious: No
  Sender: FDA-Public Use
  Company Number: None

PATIENT
  Age: 41 Year
  Sex: Female

DRUGS (1)
  1. LUPRON DEPOT [Suspect]
     Active Substance: LEUPROLIDE ACETATE
     Indication: UTERINE LEIOMYOMA
     Dosage: ?          OTHER ROUTE:IM?
     Dates: start: 20200109

REACTIONS (3)
  - Dehydration [None]
  - Hot flush [None]
  - Muscle spasms [None]

NARRATIVE: CASE EVENT DATE: 202001
